FAERS Safety Report 5025714-4 (Version None)
Quarter: 2006Q2

REPORT INFORMATION
  Report Type: 
  Country: None (occurrence: None)
  Receive Date: 20060427
  Receipt Date: 20050713
  Transmission Date: 20061013
  Serious: Yes (Other)
  Sender: FDA-Public Use
  Company Number: 2005103627

PATIENT
  Age: 75 Year
  Sex: Female

DRUGS (3)
  1. ZITHROMAX [Suspect]
     Indication: UPPER RESPIRATORY TRACT INFECTION
  2. PREDNISONE TAB [Concomitant]
  3. METHOTREXATE [Concomitant]

REACTIONS (1)
  - STEVENS-JOHNSON SYNDROME [None]
